FAERS Safety Report 25075243 (Version 1)
Quarter: 2025Q1

REPORT INFORMATION
  Report Type: Spontaneous
  Country: CN (occurrence: CN)
  Receive Date: 20250313
  Receipt Date: 20250313
  Transmission Date: 20250409
  Serious: Yes (Death, Other)
  Sender: AMGEN
  Company Number: CN-AMGEN-CHNSP2025043865

PATIENT

DRUGS (4)
  1. FILGRASTIM [Suspect]
     Active Substance: FILGRASTIM
     Indication: Neutropenia
     Dosage: 5 MICROGRAM/KILOGRAM, QD
     Route: 058
  2. PEGFILGRASTIM [Suspect]
     Active Substance: PEGFILGRASTIM
     Indication: Neutropenia
     Route: 058
  3. CISPLATIN [Concomitant]
     Active Substance: CISPLATIN
     Indication: Cervix carcinoma
     Dosage: 40 MILLIGRAM, QWK
  4. CARBOPLATIN [Concomitant]
     Active Substance: CARBOPLATIN
     Indication: Cervix carcinoma

REACTIONS (12)
  - Neutropenia [Unknown]
  - Leukopenia [Unknown]
  - Hypokalaemia [Unknown]
  - Cervix carcinoma [Fatal]
  - Febrile neutropenia [Unknown]
  - Thrombocytopenia [Unknown]
  - Injection site pain [Unknown]
  - Gastrointestinal disorder [Unknown]
  - Transaminases abnormal [Unknown]
  - Anaemia [Unknown]
  - Bone pain [Unknown]
  - Arthralgia [Unknown]
